FAERS Safety Report 9264386 (Version 1)
Quarter: 2013Q2

REPORT INFORMATION
  Report Type: Spontaneous
  Country: AU (occurrence: AU)
  Receive Date: 20130430
  Receipt Date: 20130430
  Transmission Date: 20140414
  Serious: Yes (Hospitalization, Other)
  Sender: FDA-Public Use
  Company Number: AU-BAXTER-2013BAX015544

PATIENT
  Age: 58 Year
  Sex: Female

DRUGS (6)
  1. KIOVIG NORMAL IMMUNOGLOBULIN (HUMAN) 20G/200ML FOR INTRAVENOUS USE INJ [Suspect]
     Indication: THROMBOCYTOPENIA
     Route: 042
     Dates: start: 20130223, end: 20130223
  2. CELEBREX [Concomitant]
     Indication: BACK PAIN
     Route: 048
  3. AMITRIPTYLINE [Concomitant]
     Indication: DEPRESSION
     Route: 048
  4. LYRICA [Concomitant]
     Indication: NEURALGIA
     Route: 048
  5. TRAMADOL [Concomitant]
     Indication: POLYARTHRITIS
     Route: 048
  6. PANADOL [Concomitant]
     Indication: POLYARTHRITIS
     Route: 048

REACTIONS (5)
  - Chills [Recovered/Resolved]
  - Blood pressure systolic increased [Recovered/Resolved]
  - Dyspnoea [Recovered/Resolved]
  - Back pain [Recovered/Resolved]
  - Body temperature increased [Recovered/Resolved]
